FAERS Safety Report 6084115-0 (Version None)
Quarter: 2009Q1

REPORT INFORMATION
  Report Type: 
  Country: None (occurrence: None)
  Receive Date: 20090219
  Receipt Date: 20090216
  Transmission Date: 20090719
  Serious: Yes (Life-Threatening, Hospitalization, Disabling, Other)
  Sender: FDA-Public Use
  Company Number: US-MERCK-0711USA02594

PATIENT
  Age: 61 Year
  Sex: Female
  Weight: 60 kg

DRUGS (11)
  1. SINGULAIR [Suspect]
     Indication: ASTHMA
     Route: 048
     Dates: start: 20040301
  2. PREDNISONE [Concomitant]
     Route: 065
  3. ALBUTEROL [Concomitant]
     Route: 065
  4. ATROVENT [Concomitant]
  5. FLOVENT [Concomitant]
  6. COREG [Concomitant]
     Route: 065
  7. LASIX [Concomitant]
     Route: 065
  8. ALBUTEROL [Concomitant]
  9. LEVOXYL [Concomitant]
     Route: 065
  10. CLARITIN [Concomitant]
     Route: 065
  11. IRON (UNSPECIFIED) [Concomitant]
     Route: 065

REACTIONS (12)
  - ADVERSE EVENT [None]
  - ANAEMIA [None]
  - CARDIAC FAILURE CONGESTIVE [None]
  - FAILURE TO THRIVE [None]
  - IMPAIRED DRIVING ABILITY [None]
  - LOSS OF CONSCIOUSNESS [None]
  - MUSCULOSKELETAL STIFFNESS [None]
  - PAIN [None]
  - PAIN IN EXTREMITY [None]
  - POLYARTERITIS NODOSA [None]
  - VOMITING [None]
  - WEIGHT DECREASED [None]
